FAERS Safety Report 5709270-0 (Version None)
Quarter: 2008Q2

REPORT INFORMATION
  Report Type: 
  Country: None (occurrence: None)
  Receive Date: 20080418
  Receipt Date: 20080404
  Transmission Date: 20081010
  Serious: Yes (Other)
  Sender: FDA-Public Use
  Company Number: CA-AMGEN-US271457

PATIENT
  Age: 11 Year

DRUGS (1)
  1. ARANESP [Suspect]
     Indication: DIALYSIS

REACTIONS (3)
  - METABOLIC DISORDER [None]
  - MYELOFIBROSIS [None]
  - THERAPEUTIC RESPONSE DECREASED [None]
